FAERS Safety Report 9740052 (Version 2)
Quarter: 2014Q1

REPORT INFORMATION
  Report Type: Spontaneous
  Country: DE (occurrence: DE)
  Receive Date: 20131209
  Receipt Date: 20140220
  Transmission Date: 20141002
  Serious: Yes (Hospitalization)
  Sender: FDA-Public Use
  Company Number: DE-BRISTOL-MYERS SQUIBB COMPANY-19868272

PATIENT
  Age: 84 Year
  Sex: Male
  Weight: 91 kg

DRUGS (7)
  1. ELIQUIS [Suspect]
     Indication: CEREBROVASCULAR ACCIDENT PROPHYLAXIS
     Dosage: LAST DOSE ON NOV13
     Dates: start: 20130614
  2. BELOC-ZOK [Concomitant]
  3. SORTIS [Concomitant]
  4. CAPTOPRIL [Concomitant]
  5. PANTOZOL [Concomitant]
  6. PLANUM [Concomitant]
  7. MARCUMAR [Concomitant]
     Dosage: ACCORDING TO INTERNATIONAL NORMALIZIED RATIO

REACTIONS (1)
  - Transient ischaemic attack [Recovered/Resolved]
